FAERS Safety Report 10065319 (Version 3)
Quarter: 2015Q2

REPORT INFORMATION
  Report Type: Spontaneous
  Country: US (occurrence: US)
  Receive Date: 20140408
  Receipt Date: 20150518
  Transmission Date: 20150821
  Serious: Yes (Death, Life-Threatening, Hospitalization, Disabling, Other)
  Sender: FDA-Public Use
  Company Number: US-009507513-1404USA003957

PATIENT
  Sex: Male
  Weight: 105.21 kg

DRUGS (2)
  1. JANUVIA [Suspect]
     Active Substance: SITAGLIPTIN PHOSPHATE
     Dosage: 25 MG, QD
     Route: 048
  2. JANUVIA [Suspect]
     Active Substance: SITAGLIPTIN PHOSPHATE
     Indication: TYPE 2 DIABETES MELLITUS
     Dosage: 100 MG, QD
     Route: 048
     Dates: start: 20111027, end: 20120613

REACTIONS (9)
  - Pancreatitis acute [Unknown]
  - Renal cyst [Unknown]
  - Prostatomegaly [Unknown]
  - Metastases to liver [Unknown]
  - Hyperlipidaemia [Unknown]
  - Hypertension [Unknown]
  - Metastases to lung [Unknown]
  - Pancreatic carcinoma metastatic [Fatal]
  - Gastrooesophageal reflux disease [Unknown]

NARRATIVE: CASE EVENT DATE: 20120302
